FAERS Safety Report 21981562 (Version 1)
Quarter: 2023Q1

REPORT INFORMATION
  Report Type: Spontaneous
  Country: ES (occurrence: ES)
  Receive Date: 20230212
  Receipt Date: 20230212
  Transmission Date: 20230418
  Serious: Yes (Other)
  Sender: FDA-Public Use
  Company Number: ES-002147023-NVSC2023ES030613

PATIENT
  Age: 15 Year
  Sex: Male

DRUGS (1)
  1. RISPERIDONE [Suspect]
     Active Substance: RISPERIDONE
     Indication: Schizophrenia
     Dosage: UP TO 6 MG, QD
     Route: 065

REACTIONS (5)
  - Hyperprolactinaemia [Unknown]
  - Bradyphrenia [Unknown]
  - Somnolence [Unknown]
  - Product use issue [Unknown]
  - Therapy partial responder [Unknown]
